FAERS Safety Report 21287197 (Version 1)
Quarter: 2022Q3

REPORT INFORMATION
  Report Type: Spontaneous
  Country: CN (occurrence: CN)
  Receive Date: 20220902
  Receipt Date: 20220902
  Transmission Date: 20221027
  Serious: Yes (Other)
  Sender: FDA-Public Use
  Company Number: CN-PFIZER INC-PV202200054840

PATIENT
  Age: 49 Year
  Sex: Male
  Weight: 66 kg

DRUGS (1)
  1. MEDROL [Suspect]
     Active Substance: METHYLPREDNISOLONE
     Indication: Nephrotic syndrome
     Dosage: 24 MG, 1X/DAY
     Route: 048
     Dates: start: 20220813, end: 20220818

REACTIONS (1)
  - Dysphonia [Recovering/Resolving]

NARRATIVE: CASE EVENT DATE: 20220818
